FAERS Safety Report 7317406-3 (Version None)
Quarter: 2011Q1

REPORT INFORMATION
  Report Type: 
  Country: None (occurrence: None)
  Receive Date: 20110226
  Receipt Date: 20101220
  Transmission Date: 20110831
  Serious: No
  Sender: FDA-Public Use
  Company Number: US-ALLERGAN-1013000US

PATIENT
  Age: 70 Year
  Sex: Female
  Weight: 53.061 kg

DRUGS (1)
  1. BOTOXA? [Suspect]
     Indication: IMPAIRED GASTRIC EMPTYING
     Dosage: 200 UNITS, SINGLE
     Route: 065
     Dates: start: 20100525, end: 20100525

REACTIONS (5)
  - CHEST PAIN [None]
  - NAUSEA [None]
  - ABDOMINAL PAIN UPPER [None]
  - DYSPEPSIA [None]
  - WEIGHT DECREASED [None]
